FAERS Safety Report 8187801-1 (Version None)
Quarter: 2012Q1

REPORT INFORMATION
  Report Type: 
  Country: None (occurrence: None)
  Receive Date: 20120306
  Receipt Date: 20120222
  Transmission Date: 20120608
  Serious: Yes (Other)
  Sender: FDA-Public Use
  Company Number: JP-ROCHE-1044939

PATIENT
  Sex: Female

DRUGS (13)
  1. FLUOROURACIL [Suspect]
     Indication: RECTAL CANCER
     Route: 040
     Dates: start: 20100101, end: 20100101
  2. FLUOROURACIL [Suspect]
     Route: 040
     Dates: start: 20100901
  3. GOSHA-JINKI-GAN [Concomitant]
     Route: 048
  4. OXALIPLATIN [Suspect]
     Indication: RECTAL CANCER
     Route: 041
     Dates: start: 20100101, end: 20100101
  5. AVASTIN [Suspect]
     Indication: RECTAL CANCER
     Route: 041
     Dates: start: 20110301, end: 20110101
  6. FLUOROURACIL [Suspect]
     Route: 041
     Dates: start: 20110301, end: 20110101
  7. LEVOLEUCOVORIN CALCIUM [Concomitant]
     Route: 041
     Dates: start: 20100901
  8. FLUOROURACIL [Suspect]
     Route: 040
     Dates: start: 20110301, end: 20110101
  9. OXALIPLATIN [Suspect]
     Route: 041
     Dates: start: 20110301, end: 20110101
  10. LEVOLEUCOVORIN CALCIUM [Concomitant]
     Indication: RECTAL CANCER
     Route: 041
  11. FLUOROURACIL [Suspect]
     Route: 041
     Dates: start: 20100101, end: 20100101
  12. LEVOLEUCOVORIN CALCIUM [Concomitant]
     Route: 041
     Dates: start: 20110301, end: 20110101
  13. FLUOROURACIL [Suspect]
     Route: 041
     Dates: start: 20100901

REACTIONS (2)
  - HYPERSENSITIVITY [None]
  - INTERSTITIAL LUNG DISEASE [None]
